FAERS Safety Report 26141233 (Version 2)
Quarter: 2025Q4

REPORT INFORMATION
  Report Type: Report from Study
  Country: US (occurrence: US)
  Receive Date: 20251210
  Receipt Date: 20251216
  Transmission Date: 20260117
  Serious: No
  Sender: PFIZER
  Company Number: US-PFIZER INC-202500238301

PATIENT
  Age: 65 Year
  Sex: Female

DRUGS (1)
  1. EUCRISA [Suspect]
     Active Substance: CRISABOROLE
     Indication: Morphoea
     Dosage: 2 OR 3 GRAMS TO AFFECTED AREASS 2X/DAY, AS NEEDED

REACTIONS (6)
  - Anxiety [Unknown]
  - Presyncope [Unknown]
  - Cyst [Unknown]
  - Stress [Unknown]
  - Seborrhoeic keratosis [Not Recovered/Not Resolved]
  - Off label use [Unknown]
